FAERS Safety Report 23103514 (Version 1)
Quarter: 2023Q4

REPORT INFORMATION
  Report Type: Spontaneous
  Country: US (occurrence: None)
  Receive Date: 20231022
  Receipt Date: 20231022
  Transmission Date: 20240110
  Serious: Yes (Death, Hospitalization)
  Sender: FDA-Public Use
  Company Number: None

PATIENT
  Age: 66 Year
  Sex: Male

DRUGS (1)
  1. ENOXAPARIN [Suspect]
     Active Substance: ENOXAPARIN
     Dosage: FREQUENCY : TWICE A DAY;?
     Route: 058
     Dates: start: 20230304

REACTIONS (5)
  - Illness [None]
  - Retroperitoneal haemorrhage [None]
  - Haematoma muscle [None]
  - Cardiogenic shock [None]
  - Respiratory failure [None]

NARRATIVE: CASE EVENT DATE: 20230308
